FAERS Safety Report 14614042 (Version 1)
Quarter: 2018Q1

REPORT INFORMATION
  Report Type: Spontaneous
  Country: PL (occurrence: PL)
  Receive Date: 20180308
  Receipt Date: 20180308
  Transmission Date: 20180509
  Serious: Yes (Hospitalization)
  Sender: FDA-Public Use
  Company Number: PL-TEVA-2018-PL-864596

PATIENT
  Age: 28 Year
  Sex: Female
  Weight: 47 kg

DRUGS (7)
  1. ETOPOSID EBEWE [Suspect]
     Active Substance: ETOPOSIDE
     Indication: HODGKIN^S DISEASE
     Dates: start: 20170525, end: 20170527
  2. MYOCET [Suspect]
     Active Substance: DOXORUBICIN
     Dates: start: 20170525, end: 20170527
  3. NATULAN [Suspect]
     Active Substance: PROCARBAZINE HYDROCHLORIDE
     Dosage: DOSE: 170 UNSPECIFIED UNITS
     Route: 048
     Dates: start: 20170525, end: 20170531
  4. VINCRISTIN RICHTER [Suspect]
     Active Substance: VINCRISTINE SULFATE
     Dosage: DOSE: 2 UNSPECIFIED UNITS
     Dates: start: 20170601, end: 20170601
  5. PREDNISONE. [Concomitant]
     Active Substance: PREDNISONE
     Dosage: DOSE: 60 UNSPECIFIED UNITS
     Dates: start: 20170525, end: 20170607
  6. ENDOXAN [Suspect]
     Active Substance: CYCLOPHOSPHAMIDE
     Dates: start: 20170525, end: 20170525
  7. BLEOCEL [Suspect]
     Active Substance: BLEOMYCIN SULFATE
     Dosage: DOSE: 15 UNSPECIFIED UNITS
     Dates: start: 20170601, end: 20170601

REACTIONS (4)
  - Thrombocytopenia [Recovered/Resolved]
  - Sepsis [Recovered/Resolved]
  - Anaemia [Recovered/Resolved]
  - Neutropenia [Recovered/Resolved]

NARRATIVE: CASE EVENT DATE: 20170604
